FAERS Safety Report 25264259 (Version 1)
Quarter: 2025Q2

REPORT INFORMATION
  Report Type: Spontaneous
  Country: PL (occurrence: PL)
  Receive Date: 20250502
  Receipt Date: 20250502
  Transmission Date: 20250716
  Serious: Yes (Hospitalization, Other)
  Sender: GILEAD
  Company Number: PL-GILEAD-2025-0711628

PATIENT
  Age: 72 Year
  Sex: Female

DRUGS (1)
  1. TECARTUS [Suspect]
     Active Substance: BREXUCABTAGENE AUTOLEUCEL
     Indication: Mantle cell lymphoma refractory
     Route: 065
     Dates: start: 20240325

REACTIONS (8)
  - Sinus node dysfunction [Unknown]
  - Cardiac arrest [Unknown]
  - Cytokine release syndrome [Recovered/Resolved]
  - Immune effector cell-associated neurotoxicity syndrome [Recovered/Resolved]
  - Atrial fibrillation [Unknown]
  - Syncope [Unknown]
  - Head injury [Unknown]
  - Bradycardia [Unknown]

NARRATIVE: CASE EVENT DATE: 20240330
